FAERS Safety Report 4402967-4 (Version None)
Quarter: 2004Q3

REPORT INFORMATION
  Report Type: 
  Country: None (occurrence: None)
  Receive Date: 20040721
  Receipt Date: 20030721
  Transmission Date: 20050211
  Serious: No
  Sender: FDA-Public Use
  Company Number: US-GLAXOSMITHKLINE-A0418592A

PATIENT
  Sex: Female

DRUGS (2)
  1. IMITREX [Suspect]
     Indication: MIGRAINE
     Route: 048
  2. PHENERGAN [Suspect]
     Indication: ILL-DEFINED DISORDER
     Dosage: 50MG UNKNOWN
     Route: 048

REACTIONS (3)
  - DRUG INEFFECTIVE [None]
  - PERFORMANCE STATUS DECREASED [None]
  - VOMITING [None]
